FAERS Safety Report 7527222-5 (Version None)
Quarter: 2011Q2

REPORT INFORMATION
  Report Type: 
  Country: None (occurrence: None)
  Receive Date: 20110607
  Receipt Date: 20110601
  Transmission Date: 20111010
  Serious: No
  Sender: FDA-Public Use
  Company Number: US-BIOGENIDEC-2011BI020378

PATIENT
  Age: 47 Year
  Sex: Female

DRUGS (2)
  1. TYSABRI [Suspect]
     Indication: MULTIPLE SCLEROSIS
     Route: 042
     Dates: start: 20080207, end: 20090312
  2. TYSABRI [Suspect]
     Route: 042
     Dates: start: 20091001, end: 20110414

REACTIONS (2)
  - MULTIPLE SCLEROSIS [None]
  - CHOKING [None]
